FAERS Safety Report 25538559 (Version 1)
Quarter: 2025Q3

REPORT INFORMATION
  Report Type: Spontaneous
  Country: US (occurrence: None)
  Receive Date: 20250709
  Receipt Date: 20250709
  Transmission Date: 20251020
  Serious: Yes (Disabling)
  Sender: FDA-CTU
  Company Number: None

PATIENT

DRUGS (5)
  1. LEVOFLOXACIN [Suspect]
     Active Substance: LEVOFLOXACIN
     Indication: Infection
     Dates: start: 20240612, end: 20240615
  2. METRONIDAZOLE [Suspect]
     Active Substance: METRONIDAZOLE
  3. ONDANSETRON [Suspect]
     Active Substance: ONDANSETRON
  4. IBUPROFEN [Suspect]
     Active Substance: IBUPROFEN
  5. NORCO [Concomitant]
     Active Substance: ACETAMINOPHEN\HYDROCODONE BITARTRATE

REACTIONS (11)
  - Gait disturbance [None]
  - Feeling drunk [None]
  - Dry mouth [None]
  - Taste disorder [None]
  - Palpitations [None]
  - Tendon disorder [None]
  - Musculoskeletal pain [None]
  - Paraesthesia [None]
  - Mental disorder [None]
  - Small fibre neuropathy [None]
  - Quality of life decreased [None]

NARRATIVE: CASE EVENT DATE: 20240624
